FAERS Safety Report 8241128-8 (Version None)
Quarter: 2012Q1

REPORT INFORMATION
  Report Type: 
  Country: None (occurrence: None)
  Receive Date: 20120328
  Receipt Date: 20120323
  Transmission Date: 20120608
  Serious: Yes (Death)
  Sender: FDA-Public Use
  Company Number: HU-BRISTOL-MYERS SQUIBB COMPANY-16472334

PATIENT
  Sex: Male

DRUGS (3)
  1. FLUOXETINE [Suspect]
  2. ZYPREXA [Suspect]
  3. ABILIFY [Suspect]
     Indication: SCHIZOPHRENIA

REACTIONS (1)
  - PULMONARY EMBOLISM [None]
